FAERS Safety Report 8602417-8 (Version None)
Quarter: 2012Q3

REPORT INFORMATION
  Report Type: 
  Country: None (occurrence: None)
  Receive Date: 20120817
  Receipt Date: 20120810
  Transmission Date: 20120928
  Serious: Yes (Other)
  Sender: FDA-Public Use
  Company Number: CA-ROCHE-1090525

PATIENT
  Sex: Female

DRUGS (11)
  1. OXYBUTYNIN CHLORIDE [Concomitant]
  2. CRESTOR [Concomitant]
  3. DOCUSATE SODIUM [Concomitant]
  4. CLOZAPINE [Concomitant]
  5. OLANZAPINE [Concomitant]
  6. ZELBORAF [Suspect]
     Indication: METASTATIC MALIGNANT MELANOMA
     Route: 048
     Dates: start: 20120629
  7. PANTOPRAZOLE SODIUM [Concomitant]
  8. ATIVAN [Concomitant]
  9. SERTRALINE HYDROCHLORIDE [Concomitant]
  10. SYNTHROID [Concomitant]
  11. DEXAMETHASONE [Concomitant]

REACTIONS (4)
  - SWELLING [None]
  - WEIGHT INCREASED [None]
  - ORAL DISORDER [None]
  - INCREASED APPETITE [None]
